FAERS Safety Report 11089930 (Version 1)
Quarter: 2015Q2

REPORT INFORMATION
  Report Type: Spontaneous
  Country: US (occurrence: SE)
  Receive Date: 20150505
  Receipt Date: 20150505
  Transmission Date: 20150821
  Serious: Yes (Other)
  Sender: FDA-Public Use
  Company Number: SE-FRI-1000076312

PATIENT
  Age: 58 Year
  Sex: Female

DRUGS (3)
  1. CALCIUM [Concomitant]
     Active Substance: CALCIUM
  2. LEVAXIN [Concomitant]
     Active Substance: LEVOTHYROXINE SODIUM
  3. ROFLUMILAST [Suspect]
     Active Substance: ROFLUMILAST
     Indication: CHRONIC OBSTRUCTIVE PULMONARY DISEASE
     Dosage: 500 MCG
     Route: 048
     Dates: start: 20150201, end: 20150404

REACTIONS (9)
  - Sleep disorder [Recovered/Resolved]
  - Essential tremor [Recovered/Resolved]
  - Nightmare [Recovered/Resolved]
  - Headache [Recovered/Resolved]
  - Tunnel vision [Recovered/Resolved]
  - Dizziness [Recovered/Resolved]
  - Gastrointestinal disorder [Recovered/Resolved]
  - Diarrhoea [Recovered/Resolved]
  - Nausea [Recovered/Resolved]

NARRATIVE: CASE EVENT DATE: 20150210
